FAERS Safety Report 15889314 (Version 1)
Quarter: 2019Q1

REPORT INFORMATION
  Report Type: Spontaneous
  Country: US (occurrence: US)
  Receive Date: 20190130
  Receipt Date: 20190130
  Transmission Date: 20190417
  Serious: Yes (Hospitalization)
  Sender: FDA-Public Use
  Company Number: None

PATIENT
  Sex: Male

DRUGS (6)
  1. SILODOSIN. [Concomitant]
     Active Substance: SILODOSIN
  2. PRESNISONE [Concomitant]
  3. ZOMETA [Concomitant]
     Active Substance: ZOLEDRONIC ACID
  4. ERLEADA [Suspect]
     Active Substance: APALUTAMIDE
     Indication: PROSTATE CANCER
     Route: 048
     Dates: start: 20181008
  5. DILAUDID [Concomitant]
     Active Substance: HYDROMORPHONE HYDROCHLORIDE
  6. RAPAFLO [Concomitant]
     Active Substance: SILODOSIN

REACTIONS (2)
  - Arthralgia [None]
  - Therapy cessation [None]
